FAERS Safety Report 8037786-3 (Version None)
Quarter: 2012Q1

REPORT INFORMATION
  Report Type: 
  Country: None (occurrence: None)
  Receive Date: 20120111
  Receipt Date: 20120104
  Transmission Date: 20120608
  Serious: Yes (Disabling, Other)
  Sender: FDA-Public Use
  Company Number: US-US-EMD SERONO, INC.-233216J10USA

PATIENT
  Sex: Female

DRUGS (1)
  1. REBIF [Suspect]
     Indication: PRODUCT USED FOR UNKNOWN INDICATION
     Route: 058
     Dates: start: 20040127

REACTIONS (12)
  - DIABETES MELLITUS [None]
  - AMNESIA [None]
  - TREMOR [None]
  - INJECTION SITE DISCOLOURATION [None]
  - INJECTION SITE PAIN [None]
  - GLAUCOMA [None]
  - LIP DRY [None]
  - HYPERTENSION [None]
  - HEADACHE [None]
  - LIP EXFOLIATION [None]
  - BLINDNESS [None]
  - GAIT DISTURBANCE [None]
